FAERS Safety Report 8357607-9 (Version None)
Quarter: 2012Q2

REPORT INFORMATION
  Report Type: 
  Country: None (occurrence: None)
  Receive Date: 20120510
  Receipt Date: 20120507
  Transmission Date: 20120825
  Serious: Yes (Other)
  Sender: FDA-Public Use
  Company Number: 2012SP021138

PATIENT
  Age: 15 Year
  Sex: Female
  Weight: 43 kg

DRUGS (3)
  1. CLARITIN [Suspect]
     Indication: RHINITIS ALLERGIC
     Dosage: 10 MG;QD;PO
     Route: 048
     Dates: start: 20120324
  2. GARDASIL (HUMAN PAPILLOMA VIRUS VACCINE) [Suspect]
     Indication: PROPHYLAXIS
     Dosage: DOSE #1 (IN SERIES); 2 INTRAMUSCULAR
     Route: 030
     Dates: start: 20120416
  3. GARDASIL (HUMAN PAPILLOMA VIRUS VACCINE) [Suspect]
     Indication: CERVIX CARCINOMA
     Dosage: DOSE #1 (IN SERIES); 2 INTRAMUSCULAR
     Route: 030
     Dates: start: 20120416

REACTIONS (3)
  - DIZZINESS [None]
  - DECREASED APPETITE [None]
  - HYPERHIDROSIS [None]
